FAERS Safety Report 6169089-6 (Version None)
Quarter: 2009Q2

REPORT INFORMATION
  Report Type: 
  Country: None (occurrence: None)
  Receive Date: 20090427
  Receipt Date: 20090417
  Transmission Date: 20091009
  Serious: Yes (Other)
  Sender: FDA-Public Use
  Company Number: CN-PFIZER INC-2009195023

PATIENT

DRUGS (1)
  1. CELEBREX [Suspect]
     Indication: BONE PAIN
     Dosage: UNK
     Route: 048
     Dates: start: 20090301

REACTIONS (4)
  - EJECTION FRACTION DECREASED [None]
  - PALPITATIONS [None]
  - PERICARDIAL EFFUSION [None]
  - SUPRAVENTRICULAR EXTRASYSTOLES [None]
